FAERS Safety Report 8103256-7 (Version None)
Quarter: 2012Q1

REPORT INFORMATION
  Report Type: 
  Country: None (occurrence: None)
  Receive Date: 20120201
  Receipt Date: 20120124
  Transmission Date: 20120608
  Serious: Yes (Other)
  Sender: FDA-Public Use
  Company Number: US-BAYER-2012-007872

PATIENT
  Sex: Female

DRUGS (1)
  1. MIRENA [Suspect]
     Indication: CONTRACEPTION
     Dosage: 20 MCG/24HR, CONT
     Route: 015
     Dates: start: 20070201, end: 20120124

REACTIONS (14)
  - PREGNANCY WITH CONTRACEPTIVE DEVICE [None]
  - VOMITING [None]
  - NAUSEA [None]
  - MENSTRUATION DELAYED [None]
  - POLYMENORRHOEA [None]
  - UTERINE ENLARGEMENT [None]
  - DEVICE DISLOCATION [None]
  - ABORTION SPONTANEOUS [None]
  - ENDOMETRIOSIS [None]
  - OVARIAN FIBROMA [None]
  - PELVIC INFLAMMATORY DISEASE [None]
  - HAEMORRHAGE IN PREGNANCY [None]
  - PYREXIA [None]
  - GENITAL HAEMORRHAGE [None]
